FAERS Safety Report 16217261 (Version 2)
Quarter: 2019Q2

REPORT INFORMATION
  Report Type: Spontaneous
  Country: AR (occurrence: AR)
  Receive Date: 20190419
  Receipt Date: 20190604
  Transmission Date: 20190711
  Serious: Yes (Other)
  Sender: FDA-Public Use
  Company Number: AR-PFIZER INC-2019162407

PATIENT
  Age: 64 Year
  Sex: Female

DRUGS (1)
  1. XELJANZ [Suspect]
     Active Substance: TOFACITINIB CITRATE
     Indication: RHEUMATOID ARTHRITIS
     Dosage: 5 MG, TWICE DAILY
     Dates: start: 20181012

REACTIONS (7)
  - Malaise [Unknown]
  - Limb injury [Recovering/Resolving]
  - Foot deformity [Recovering/Resolving]
  - Diarrhoea [Recovered/Resolved]
  - Tendonitis [Recovering/Resolving]
  - Bursal fluid accumulation [Recovering/Resolving]
  - Localised infection [Recovered/Resolved]

NARRATIVE: CASE EVENT DATE: 201812
